FAERS Safety Report 6657779-8 (Version None)
Quarter: 2010Q1

REPORT INFORMATION
  Report Type: 
  Country: None (occurrence: None)
  Receive Date: 20100330
  Receipt Date: 20100305
  Transmission Date: 20100710
  Serious: Yes (Life-Threatening)
  Sender: FDA-Public Use
  Company Number: US-TYCO HEALTHCARE/MALLINCKRODT-T201000762

PATIENT
  Sex: Female

DRUGS (1)
  1. METHADOSE [Suspect]
     Indication: SPINAL FUSION SURGERY
     Dosage: UNK
     Dates: start: 19751209

REACTIONS (2)
  - OFF LABEL USE [None]
  - RESPIRATORY ARREST [None]
